FAERS Safety Report 7639272-9 (Version None)
Quarter: 2011Q3

REPORT INFORMATION
  Report Type: 
  Country: None (occurrence: None)
  Receive Date: 20110727
  Receipt Date: 20110713
  Transmission Date: 20111222
  Serious: Yes (Other)
  Sender: FDA-Public Use
  Company Number: PHHY2011CA57976

PATIENT
  Sex: Female

DRUGS (5)
  1. CRESTOR [Concomitant]
     Dosage: 5 MG, (MORE THAN FIVE YEARS)
  2. ZOLEDRONOC ACID [Suspect]
     Dosage: 5 MG, UNK
     Route: 042
     Dates: start: 20110629, end: 20110629
  3. ZOLEDRONOC ACID [Suspect]
     Indication: OSTEOPOROSIS POSTMENOPAUSAL
     Dosage: 5 MG, UNK
     Route: 042
     Dates: start: 20100601
  4. CITALOPRAM HYDROBROMIDE [Concomitant]
     Dosage: 30 MG, (18 MONTHS)
  5. VITAMIN D [Concomitant]

REACTIONS (5)
  - FEELING COLD [None]
  - BLOOD PRESSURE INCREASED [None]
  - DIZZINESS [None]
  - LOSS OF CONSCIOUSNESS [None]
  - HEART RATE INCREASED [None]
